FAERS Safety Report 13517322 (Version 1)
Quarter: 2017Q2

REPORT INFORMATION
  Report Type: Spontaneous
  Country: JP (occurrence: JP)
  Receive Date: 20170505
  Receipt Date: 20170505
  Transmission Date: 20170830
  Serious: Yes (Life-Threatening, Other)
  Sender: FDA-Public Use
  Company Number: JP-009507513-1705JPN002696

PATIENT
  Age: 74 Year
  Sex: Female

DRUGS (7)
  1. DEXAMETHASONE. [Suspect]
     Active Substance: DEXAMETHASONE
     Indication: ANTIEMETIC SUPPORTIVE CARE
     Dosage: 6.6 MG ON DAYS 2 AND 3
  2. FLUOROURACIL. [Concomitant]
     Active Substance: FLUOROURACIL
     Indication: HEPATOCELLULAR CARCINOMA
     Dosage: 150 MG/M2/DAY; 5 DAYS OF CONTINUOUS
  3. VALSARTAN. [Concomitant]
     Active Substance: VALSARTAN
     Indication: HYPERTENSION
     Dosage: UNK
  4. CISPLATIN. [Concomitant]
     Active Substance: CISPLATIN
     Indication: HEPATOCELLULAR CARCINOMA
     Dosage: BOLUS; 30 MG/M2 ON DAY 2
  5. CISPLATIN. [Concomitant]
     Active Substance: CISPLATIN
     Indication: REGIONAL CHEMOTHERAPY
     Dosage: 150 MG/M2/DAY; 5 DAYS OF CONTINUOUS
  6. GRANISETRON [Concomitant]
     Active Substance: GRANISETRON
     Dosage: 3 MG ON DAYS 2
  7. FLUOROURACIL. [Concomitant]
     Active Substance: FLUOROURACIL
     Indication: REGIONAL CHEMOTHERAPY

REACTIONS (1)
  - Hepatitis C [Recovered/Resolved]
